FAERS Safety Report 5300810-2 (Version None)
Quarter: 2007Q1

REPORT INFORMATION
  Report Type: 
  Country: None (occurrence: None)
  Receive Date: 20070201
  Receipt Date: 20061016
  Transmission Date: 20070707
  Serious: No
  Sender: FDA-Public Use
  Company Number: 2006PV023151

PATIENT
  Age: 79 Year
  Sex: Female

DRUGS (3)
  1. BYETTA [Suspect]
     Dosage: 5 MCG;BID;SC
     Route: 058
     Dates: start: 20061007, end: 20061015
  2. PRANDIN [Concomitant]
  3. WATER PILL NOS [Concomitant]

REACTIONS (5)
  - ABDOMINAL PAIN UPPER [None]
  - BLOOD PRESSURE INCREASED [None]
  - DIARRHOEA [None]
  - ERUCTATION [None]
  - FREQUENT BOWEL MOVEMENTS [None]
